FAERS Safety Report 4821925-9 (Version None)
Quarter: 2005Q4

REPORT INFORMATION
  Report Type: 
  Country: None (occurrence: None)
  Receive Date: 20051103
  Receipt Date: 20051017
  Transmission Date: 20060501
  Serious: Yes (Death)
  Sender: FDA-Public Use
  Company Number: EWC051046615

PATIENT
  Age: 73 Year
  Sex: Female
  Weight: 44.9061 kg

DRUGS (3)
  1. FORSTEO (TERIPARATIDE) [Suspect]
     Indication: OSTEOPOROSIS
     Dosage: 20 UG DAY
     Dates: start: 20041101, end: 20050921
  2. ASPIRIN [Concomitant]
  3. SELECTIN (PRAVASTATIN SODIUM) [Concomitant]

REACTIONS (1)
  - MALAISE [None]
